FAERS Safety Report 4380278-3 (Version None)
Quarter: 2004Q2

REPORT INFORMATION
  Report Type: 
  Country: None (occurrence: None)
  Receive Date: 20040618
  Receipt Date: 20040419
  Transmission Date: 20050107
  Serious: Yes (Hospitalization)
  Sender: FDA-Public Use
  Company Number: PHRM2004FR01567

PATIENT
  Age: 48 Year
  Sex: Female

DRUGS (2)
  1. TAREG [Suspect]
     Route: 048
     Dates: start: 20040115, end: 20040313
  2. MODURETIC ^MERCK^ [Suspect]
     Indication: HYPERTENSION
     Route: 048
     Dates: start: 20040115, end: 20040313

REACTIONS (6)
  - ERYTHEMA [None]
  - FACE OEDEMA [None]
  - LOCALISED INFECTION [None]
  - PHOTOSENSITIVITY REACTION [None]
  - PRURITUS [None]
  - URTICARIA [None]
